FAERS Safety Report 21170587 (Version 8)
Quarter: 2022Q4

REPORT INFORMATION
  Report Type: Spontaneous
  Country: US (occurrence: US)
  Receive Date: 20220804
  Receipt Date: 20221202
  Transmission Date: 20230112
  Serious: No
  Sender: FDA-Public Use
  Company Number: US-ALXN-A202209109

PATIENT
  Age: 9 Year
  Sex: Male

DRUGS (1)
  1. STRENSIQ [Suspect]
     Active Substance: ASFOTASE ALFA
     Indication: Hypophosphatasia
     Dosage: 48 MG, TIW
     Route: 058
     Dates: start: 20220729, end: 20220807

REACTIONS (9)
  - Weight decreased [Unknown]
  - Arthropod bite [Not Recovered/Not Resolved]
  - Urticaria [Unknown]
  - Feeling abnormal [Unknown]
  - Injection site hypersensitivity [Unknown]
  - Injection site pain [Unknown]
  - Injection site swelling [Unknown]
  - Injection site warmth [Unknown]
  - Injection site reaction [Recovered/Resolved]

NARRATIVE: CASE EVENT DATE: 20220730
